FAERS Safety Report 21108033 (Version 1)
Quarter: 2022Q3

REPORT INFORMATION
  Report Type: Spontaneous
  Country: US (occurrence: US)
  Receive Date: 20220720
  Receipt Date: 20220720
  Transmission Date: 20221026
  Serious: No
  Sender: FDA-Public Use
  Company Number: US-SA-SAC20220714001770

PATIENT
  Age: 43 Year
  Sex: Male

DRUGS (1)
  1. DUPIXENT [Suspect]
     Active Substance: DUPILUMAB
     Dosage: DOSE 300MG FREQUENCY : OTHER
     Route: 058
     Dates: start: 202112

REACTIONS (2)
  - Headache [Unknown]
  - Injection site mass [Unknown]

NARRATIVE: CASE EVENT DATE: 20220628
